FAERS Safety Report 25489989 (Version 2)
Quarter: 2025Q3

REPORT INFORMATION
  Report Type: Spontaneous
  Country: US (occurrence: US)
  Receive Date: 20250628
  Receipt Date: 20250807
  Transmission Date: 20251021
  Serious: No
  Sender: SANOFI AVENTIS
  Company Number: US-SA-2025SA181657

PATIENT
  Age: 66 Year
  Sex: Male

DRUGS (2)
  1. KEVZARA [Suspect]
     Active Substance: SARILUMAB
     Indication: Rheumatoid arthritis
     Dosage: 150 MG, QOW
     Route: 058
     Dates: start: 202404
  2. OFEV [Suspect]
     Active Substance: NINTEDANIB
     Indication: Pulmonary fibrosis

REACTIONS (2)
  - Diarrhoea [Recovered/Resolved]
  - Headache [Recovered/Resolved]
